FAERS Safety Report 18074247 (Version 1)
Quarter: 2020Q3

REPORT INFORMATION
  Report Type: Spontaneous
  Country: CA (occurrence: CA)
  Receive Date: 20200727
  Receipt Date: 20200727
  Transmission Date: 20201103
  Serious: Yes (Hospitalization)
  Sender: FDA-Public Use
  Company Number: CA-TEVA-2020-CA-1805326

PATIENT
  Age: 32 Year
  Sex: Male

DRUGS (2)
  1. ESCITALOPRAM [Suspect]
     Active Substance: ESCITALOPRAM OXALATE
     Indication: DEPRESSION
     Dosage: 1 DOSAGE FORM
     Route: 048
  2. OXAZEPAM. [Concomitant]
     Active Substance: OXAZEPAM

REACTIONS (8)
  - Endotracheal intubation [Unknown]
  - Hyperthermia [Unknown]
  - Mydriasis [Unknown]
  - Serotonin syndrome [Unknown]
  - Clonus [Unknown]
  - Mechanical ventilation [Unknown]
  - Agitation [Unknown]
  - Tachycardia [Unknown]
